FAERS Safety Report 4318088-5 (Version None)
Quarter: 2004Q1

REPORT INFORMATION
  Report Type: 
  Country: None (occurrence: None)
  Receive Date: 20040317
  Receipt Date: 20040304
  Transmission Date: 20041129
  Serious: Yes (Hospitalization)
  Sender: FDA-Public Use
  Company Number: WAES 0403USA00764

PATIENT
  Age: 57 Year
  Sex: Female

DRUGS (6)
  1. FLUOROMETHOLONE [Concomitant]
  2. GLICLAZIDE [Concomitant]
     Indication: DIABETES MELLITUS
  3. GRANULOCYTE COLONY STIMULATING FACTOR (UNSPECIFIED) [Concomitant]
  4. PREDNISOLONE [Concomitant]
  5. TIMOPTIC [Suspect]
     Indication: UVEITIS
     Route: 047
  6. TIMOPTIC [Suspect]
     Indication: GLAUCOMA
     Route: 047

REACTIONS (13)
  - ABNORMAL SENSATION IN EYE [None]
  - BACTERIAL CORNEAL ULCER [None]
  - CATARACT [None]
  - EYE REDNESS [None]
  - FOREIGN BODY TRAUMA [None]
  - HYPOPYON [None]
  - IRITIS [None]
  - OCULAR HYPERAEMIA [None]
  - PANCYTOPENIA [None]
  - PUNCTATE KERATITIS [None]
  - RETINAL HAEMORRHAGE [None]
  - SHIFT TO THE LEFT [None]
  - ULCER [None]
